FAERS Safety Report 8969863 (Version 2)
Quarter: 2012Q4

REPORT INFORMATION
  Report Type: Report from Study
  Country: CA (occurrence: CA)
  Receive Date: 20121217
  Receipt Date: 20121224
  Transmission Date: 20130627
  Serious: Yes (Other)
  Sender: FDA-Public Use
  Company Number: CA-ROCHE-1165039

PATIENT
  Age: 53 Year
  Sex: Male

DRUGS (3)
  1. CAPECITABINE [Suspect]
     Indication: COLORECTAL CANCER METASTATIC
     Route: 048
     Dates: start: 20120525
  2. ZOPICLONE [Concomitant]
  3. TELMISARTAN [Concomitant]

REACTIONS (3)
  - Large intestine operation [Recovered/Resolved]
  - Impaired healing [Recovered/Resolved]
  - Postoperative wound infection [Recovered/Resolved]
